FAERS Safety Report 4502396-9 (Version None)
Quarter: 2004Q4

REPORT INFORMATION
  Report Type: 
  Country: None (occurrence: None)
  Receive Date: 20041110
  Receipt Date: 20041025
  Transmission Date: 20050328
  Serious: Yes (Hospitalization)
  Sender: FDA-Public Use
  Company Number: T04-GER-07359-01

PATIENT
  Age: 65 Year
  Sex: Male

DRUGS (5)
  1. CITALOPRAM HYDROBROMIDE [Suspect]
     Dosage: 80 MG QD PO
     Route: 048
     Dates: start: 20020401, end: 20021105
  2. QUILONUM - SLOW RELEASE (LITHIUM CARBONATE) [Suspect]
     Dosage: 675 MG QD PO
     Route: 048
     Dates: start: 20020521, end: 20021117
  3. ZYPREXA [Suspect]
     Dosage: 2.5 MG QD PO
     Route: 048
  4. DOCITON (PROPRANOLOL HYDROCHLORIDE) [Concomitant]
  5. LEVOTHYROXINE SODIUM [Concomitant]

REACTIONS (4)
  - ATROPHY [None]
  - DRUG INTERACTION [None]
  - PARKINSONISM [None]
  - PRESCRIBED OVERDOSE [None]
